FAERS Safety Report 9348026 (Version 2)
Quarter: 2013Q4

REPORT INFORMATION
  Report Type: Spontaneous
  Country: FR (occurrence: FR)
  Receive Date: 20130614
  Receipt Date: 20131023
  Transmission Date: 20140711
  Serious: Yes (Other)
  Sender: FDA-Public Use
  Company Number: FR-009507513-1306FRA003461

PATIENT
  Age: 60 Year
  Sex: Female

DRUGS (1)
  1. DIPROSTENE [Suspect]
     Indication: MUSCULOSKELETAL PAIN
     Dosage: UNK
     Route: 014
     Dates: start: 201212, end: 201212

REACTIONS (1)
  - Urticaria [Recovered/Resolved]
